FAERS Safety Report 8809848 (Version 2)
Quarter: 2013Q1

REPORT INFORMATION
  Report Type: Report from Study
  Country: CA (occurrence: CA)
  Receive Date: 20120926
  Receipt Date: 20130307
  Transmission Date: 20140127
  Serious: Yes (Other)
  Sender: FDA-Public Use
  Company Number: CA-ROCHE-1134762

PATIENT
  Sex: Female
  Weight: 69 kg

DRUGS (28)
  1. TOCILIZUMAB [Suspect]
     Indication: PSORIATIC ARTHROPATHY
     Route: 042
     Dates: start: 20120626
  2. TOCILIZUMAB [Suspect]
     Route: 042
     Dates: start: 20120723
  3. TOCILIZUMAB [Suspect]
     Route: 042
     Dates: start: 20120820
  4. TOCILIZUMAB [Suspect]
     Route: 042
     Dates: start: 20121004
  5. TOCILIZUMAB [Suspect]
     Route: 042
     Dates: start: 20121126
  6. TOCILIZUMAB [Suspect]
     Route: 042
     Dates: start: 20130108, end: 20130108
  7. PREDNISONE [Concomitant]
  8. LACRI-LUBE [Concomitant]
  9. LACTULOSE [Concomitant]
  10. PMS-HYDROMORPHONE [Concomitant]
  11. HYDERM [Concomitant]
  12. VITAMIN B12 [Concomitant]
  13. TOPIRAMATE [Concomitant]
  14. RAMIPRIL [Concomitant]
  15. QUETIAPINE FUMARATE [Concomitant]
  16. SENNOSIDES [Concomitant]
  17. PANTOPRAZOLE [Concomitant]
  18. NIFEDIPINE [Concomitant]
  19. MIRTAZAPINE [Concomitant]
  20. SYNTHROID [Concomitant]
  21. FERROUS SULFATE [Concomitant]
  22. CYMBALTA [Concomitant]
  23. WARFARIN [Concomitant]
  24. FENTANYL [Concomitant]
  25. ATORVASTATIN [Concomitant]
  26. CESAMET [Concomitant]
  27. FRAGMIN [Concomitant]
  28. AVAMYS [Concomitant]

REACTIONS (3)
  - Depression [Not Recovered/Not Resolved]
  - Suicidal ideation [Unknown]
  - Weight decreased [Unknown]
